FAERS Safety Report 8338476-X (Version None)
Quarter: 2012Q2

REPORT INFORMATION
  Report Type: 
  Country: None (occurrence: None)
  Receive Date: 20120504
  Receipt Date: 20120430
  Transmission Date: 20120825
  Serious: No
  Sender: FDA-Public Use
  Company Number: US-B.I. PHARMACEUTICALS,INC./RIDGEFIELD-2012-BP-09789BP

PATIENT
  Age: 85 Year
  Sex: Female

DRUGS (7)
  1. SPIRIVA [Suspect]
     Indication: BREATH SOUNDS ABNORMAL
     Dosage: 18 MCG
     Route: 055
     Dates: start: 20120423, end: 20120426
  2. LORTAB [Concomitant]
     Indication: PAIN IN EXTREMITY
  3. SYNTHROID [Concomitant]
     Indication: HYPOTHYROIDISM
  4. METOPROLO [Concomitant]
     Indication: CARDIAC DISORDER
  5. XANAX [Concomitant]
     Indication: INSOMNIA
  6. SPIRIVA [Suspect]
     Indication: INCREASED UPPER AIRWAY SECRETION
     Dosage: 18 MCG
     Route: 055
     Dates: start: 20120429
  7. LISINOPRIL [Concomitant]
     Indication: CARDIAC DISORDER

REACTIONS (3)
  - DIZZINESS [None]
  - NAUSEA [None]
  - ASTHENIA [None]
